FAERS Safety Report 4421420-5 (Version None)
Quarter: 2004Q3

REPORT INFORMATION
  Report Type: 
  Country: None (occurrence: None)
  Receive Date: 20040706
  Receipt Date: 20040513
  Transmission Date: 20050211
  Serious: Yes (Life-Threatening)
  Sender: FDA-Public Use
  Company Number: 236983

PATIENT
  Age: 41 Year
  Sex: Male
  Weight: 90.7 kg

DRUGS (2)
  1. NOVOLOG [Suspect]
     Indication: INSULIN-REQUIRING TYPE II DIABETES MELLITUS
     Dosage: 55 IU, QD, SUBCUTANEOUS
     Route: 058
     Dates: start: 20040407, end: 20040512
  2. NOVOFINE(R) 30 (NEEDLE) [Concomitant]

REACTIONS (2)
  - HYPOGLYCAEMIC COMA [None]
  - MEDICATION ERROR [None]
